FAERS Safety Report 8836159 (Version 2)
Quarter: 2012Q4

REPORT INFORMATION
  Report Type: 
  Country: AU (occurrence: AU)
  Receive Date: 20121011
  Receipt Date: 20121101
  Transmission Date: 20130627
  Serious: Yes (Other)
  Sender: FDA-Public Use
  Company Number: AU-PFIZER INC-2012251869

PATIENT
  Age: 62 Year
  Sex: Male

DRUGS (7)
  1. TRITACE [Suspect]
     Indication: HYPERTENSION
     Dosage: 5 mg, 1x/day
     Route: 048
     Dates: start: 20120906, end: 20120924
  2. NEXIUM [Concomitant]
     Dosage: UNK
  3. RHINOCORT [Concomitant]
     Dosage: UNK
  4. RITALIN [Concomitant]
     Dosage: UNK
  5. SIGMACORT [Concomitant]
     Dosage: UNK
  6. VIAGRA [Concomitant]
     Dosage: UNK
  7. VOLTAREN [Concomitant]
     Dosage: UNK

REACTIONS (2)
  - Haematuria [Recovered/Resolved]
  - Thrombosis [Recovered/Resolved]
